FAERS Safety Report 9408038 (Version 1)
Quarter: 2013Q3

REPORT INFORMATION
  Report Type: Spontaneous
  Country: CA (occurrence: CA)
  Receive Date: 20130718
  Receipt Date: 20130718
  Transmission Date: 20140515
  Serious: Yes (Hospitalization, Other)
  Sender: FDA-Public Use
  Company Number: CA-TEVA-419710USA

PATIENT
  Age: 77 Year
  Sex: Male

DRUGS (11)
  1. DILTIAZEM [Suspect]
     Dosage: 120 MILLIGRAM DAILY;
     Route: 065
  2. FUROSEMIDE [Interacting]
     Indication: RIGHT VENTRICULAR FAILURE
     Route: 042
  3. FUROSEMIDE [Interacting]
     Indication: RIGHT VENTRICULAR FAILURE
     Route: 048
  4. REVATIO [Interacting]
     Indication: PULMONARY HYPERTENSION
     Route: 048
  5. ASPIRIN [Concomitant]
     Dosage: 81 MILLIGRAM DAILY;
     Route: 065
  6. CLOPIDOGREL [Concomitant]
     Dosage: 75 MILLIGRAM DAILY;
     Route: 065
  7. ATORVASTATIN [Concomitant]
     Dosage: 40 MILLIGRAM DAILY;
     Route: 065
  8. FLUTICASONE PROPIONATE, SALMETEROL [Concomitant]
     Dosage: 250/125 MCG
     Route: 055
  9. TIOTROPIUM BROMIDE [Concomitant]
     Dosage: 18 MICROGRAM DAILY;
     Route: 055
  10. ACETYLCYSTEINE [Concomitant]
     Route: 065
  11. DOMPERIDONE [Concomitant]
     Route: 065

REACTIONS (2)
  - Deafness bilateral [Recovered/Resolved]
  - Drug interaction [Recovered/Resolved]
